FAERS Safety Report 6518151-4 (Version None)
Quarter: 2009Q4

REPORT INFORMATION
  Report Type: 
  Country: None (occurrence: None)
  Receive Date: 20091224
  Receipt Date: 20091216
  Transmission Date: 20100525
  Serious: Yes (Death, Other)
  Sender: FDA-Public Use
  Company Number: IT-GENENTECH-295744

PATIENT
  Age: 51 Year
  Sex: Male

DRUGS (5)
  1. RITUXIMAB [Suspect]
     Indication: B-CELL LYMPHOMA
     Dosage: 375 MG/M2, UNK
     Route: 065
     Dates: start: 20020701
  2. RITUXIMAB [Suspect]
     Dosage: 375 MG/M2, UNK
     Route: 065
     Dates: start: 20040201
  3. RITUXIMAB [Suspect]
     Dosage: 150 MG/M2, UNK
     Route: 065
  4. FLUDARABINE [Concomitant]
     Indication: B-CELL LYMPHOMA
     Dosage: UNK
     Dates: start: 20011101
  5. LAMIVUDINE [Concomitant]
     Indication: ANTIVIRAL PROPHYLAXIS
     Dosage: UNK
     Dates: start: 20040901

REACTIONS (2)
  - DEATH [None]
  - HEPATITIS B [None]
